FAERS Safety Report 9706545 (Version 1)
Quarter: 2013Q4

REPORT INFORMATION
  Report Type: Spontaneous
  Country: GB (occurrence: GB)
  Receive Date: 20131125
  Receipt Date: 20131125
  Transmission Date: 20140711
  Serious: Yes (Other)
  Sender: FDA-Public Use
  Company Number: GB-MERCK-1311GBR009238

PATIENT
  Age: 60 Year
  Sex: Male
  Weight: 92 kg

DRUGS (14)
  1. SITAGLIPTIN PHOSPHATE [Suspect]
     Dosage: UNK
     Dates: start: 20130917
  2. AMLODIPINE [Concomitant]
     Dosage: UNK
     Dates: start: 20130814, end: 20130911
  3. AMLODIPINE [Concomitant]
     Dosage: UNK
     Dates: start: 20131022
  4. DOXAZOSIN MESYLATE [Concomitant]
     Dosage: UNK
     Dates: start: 20130814, end: 20130911
  5. DOXAZOSIN MESYLATE [Concomitant]
     Dosage: UNK
     Dates: start: 20131022
  6. BENDROFLUMETHIAZIDE [Concomitant]
     Dosage: UNK
     Dates: start: 20130814, end: 20130911
  7. BENDROFLUMETHIAZIDE [Concomitant]
     Dosage: UNK
     Dates: start: 20131022
  8. GLICLAZIDE [Concomitant]
     Dosage: UNK
     Dates: start: 20130814, end: 20130911
  9. MK-9378 [Concomitant]
     Dosage: UNK
     Dates: start: 20130814, end: 20130911
  10. MK-9378 [Concomitant]
     Dosage: UNK
     Dates: start: 20131022
  11. RAMIPRIL [Concomitant]
     Dosage: UNK
     Dates: start: 20130814, end: 20130911
  12. RAMIPRIL [Concomitant]
     Dosage: UNK
     Dates: start: 20131022
  13. SIMVASTATIN [Concomitant]
     Dosage: UNK
     Dates: start: 20130814, end: 20130911
  14. SIMVASTATIN [Concomitant]
     Dosage: UNK
     Dates: start: 20131022

REACTIONS (1)
  - Dyspepsia [Recovered/Resolved]
